FAERS Safety Report 8485319-X (Version None)
Quarter: 2012Q3

REPORT INFORMATION
  Report Type: 
  Country: None (occurrence: None)
  Receive Date: 20120703
  Receipt Date: 20120630
  Transmission Date: 20120928
  Serious: No
  Sender: FDA-Public Use
  Company Number: US-PFIZER INC-2012157078

PATIENT
  Sex: Female

DRUGS (1)
  1. TOVIAZ [Suspect]
     Dosage: UNK
     Dates: start: 20120626

REACTIONS (1)
  - DYSCHEZIA [None]
